FAERS Safety Report 6493310-8 (Version None)
Quarter: 2009Q4

REPORT INFORMATION
  Report Type: 
  Country: None (occurrence: None)
  Receive Date: 20091214
  Receipt Date: 20091204
  Transmission Date: 20100525
  Serious: Yes (Death)
  Sender: FDA-Public Use
  Company Number: JP-ABBOTT-09P-087-0609617-00

PATIENT
  Sex: Female

DRUGS (7)
  1. HUMIRA [Suspect]
     Indication: RHEUMATOID ARTHRITIS
     Dates: start: 20090710, end: 20091112
  2. METHOTREXATE [Concomitant]
     Indication: RHEUMATOID ARTHRITIS
     Dates: end: 20091022
  3. MIZORIBINE [Concomitant]
     Indication: RHEUMATOID ARTHRITIS
     Dates: end: 20091022
  4. PREDNISOLONE [Concomitant]
     Indication: RHEUMATOID ARTHRITIS
     Route: 048
     Dates: end: 20091116
  5. ALFACALCIDOL [Concomitant]
     Indication: OSTEOPOROSIS PROPHYLAXIS
     Dates: end: 20091116
  6. CELECOXIB [Concomitant]
     Indication: RHEUMATOID ARTHRITIS
     Dates: end: 20091116
  7. SERTRALINE HYDROCHLORIDE [Concomitant]
     Indication: DEPRESSION
     Dates: end: 20091116

REACTIONS (2)
  - COMPLETED SUICIDE [None]
  - DEPRESSION [None]
